FAERS Safety Report 20309287 (Version 1)
Quarter: 2022Q1

REPORT INFORMATION
  Report Type: Spontaneous
  Country: US (occurrence: None)
  Receive Date: 20220107
  Receipt Date: 20220107
  Transmission Date: 20220424
  Serious: No
  Sender: FDA-Public Use
  Company Number: 2022A006794

PATIENT
  Sex: Female

DRUGS (1)
  1. SYMBICORT [Suspect]
     Active Substance: BUDESONIDE\FORMOTEROL FUMARATE DIHYDRATE
     Dosage: 160/ 4.5 UNKNOWN UNKNOWN
     Route: 055

REACTIONS (4)
  - Cough [Unknown]
  - Product dose omission issue [Unknown]
  - Wrong technique in device usage process [Not Recovered/Not Resolved]
  - Device defective [Unknown]
